FAERS Safety Report 13643909 (Version 1)
Quarter: 2017Q2

REPORT INFORMATION
  Report Type: Spontaneous
  Country: US (occurrence: US)
  Receive Date: 20170612
  Receipt Date: 20170612
  Transmission Date: 20170830
  Serious: Yes (Hospitalization, Other)
  Sender: FDA-Public Use
  Company Number: US-TEVA-776703USA

PATIENT
  Age: 63 Year
  Sex: Female

DRUGS (3)
  1. METOPROLOL. [Suspect]
     Active Substance: METOPROLOL
     Indication: ATRIAL FIBRILLATION
     Route: 042
  2. METOPROLOL. [Interacting]
     Active Substance: METOPROLOL
     Indication: ATRIAL FIBRILLATION
     Route: 048
  3. FEXOFENADINE, PSEUDOEPHEDRINE [Interacting]
     Active Substance: FEXOFENADINE\PSEUDOEPHEDRINE
     Dosage: DAILY
     Route: 065

REACTIONS (3)
  - Acute myocardial infarction [Recovering/Resolving]
  - Arteriospasm coronary [Recovering/Resolving]
  - Drug interaction [Recovering/Resolving]
